FAERS Safety Report 18549380 (Version 2)
Quarter: 2020Q4

REPORT INFORMATION
  Report Type: Spontaneous
  Country: DE (occurrence: DE)
  Receive Date: 20201126
  Receipt Date: 20201216
  Transmission Date: 20210114
  Serious: Yes (Other)
  Sender: FDA-Public Use
  Company Number: DE-SA-2020SA330239

PATIENT

DRUGS (7)
  1. CELLCEPT [Concomitant]
     Active Substance: MYCOPHENOLATE MOFETIL\MYCOPHENOLATE MOFETIL HYDROCHLORIDE
  2. PREDNISOLONE. [Concomitant]
     Active Substance: PREDNISOLONE
     Dosage: UNK UNK, QW
     Dates: start: 201911
  3. RITUXIMAB. [Concomitant]
     Active Substance: RITUXIMAB
     Dosage: UNK
     Dates: start: 201908, end: 20190909
  4. AZATHIOPRINE. [Concomitant]
     Active Substance: AZATHIOPRINE
  5. PREDNISOLONE. [Concomitant]
     Active Substance: PREDNISOLONE
     Dosage: UNK UNK, QD
     Dates: start: 2019
  6. CABLIVI [Suspect]
     Active Substance: CAPLACIZUMAB-YHDP
     Dosage: UNK
  7. RITUXIMAB. [Concomitant]
     Active Substance: RITUXIMAB
     Dosage: UNK

REACTIONS (1)
  - Thrombocytopenia [Unknown]
